FAERS Safety Report 16759235 (Version 5)
Quarter: 2019Q4

REPORT INFORMATION
  Report Type: Spontaneous
  Country: US (occurrence: US)
  Receive Date: 20190830
  Receipt Date: 20191016
  Transmission Date: 20200122
  Serious: Yes (Hospitalization, Other)
  Sender: FDA-Public Use
  Company Number: US-UNITED THERAPEUTICS-UNT-2019-014300

PATIENT
  Age: 10 Year
  Sex: Female
  Weight: 23.58 kg

DRUGS (3)
  1. REMODULIN [Suspect]
     Active Substance: TREPROSTINIL
     Indication: PULMONARY ARTERIAL HYPERTENSION
     Dosage: 0.0985 ?G/KG, CONTINUING
     Route: 058
     Dates: start: 20140729
  2. REMODULIN [Suspect]
     Active Substance: TREPROSTINIL
     Dosage: 0.090 ?G/KG, CONTINUING
     Route: 058
  3. DILTIAZEM. [Concomitant]
     Active Substance: DILTIAZEM
     Indication: PRODUCT USED FOR UNKNOWN INDICATION
     Dosage: UNK
     Route: 065

REACTIONS (8)
  - Chest pain [Recovered/Resolved]
  - Gastrooesophageal reflux disease [Recovered/Resolved]
  - Infusion site swelling [Unknown]
  - Atrial tachycardia [Not Recovered/Not Resolved]
  - Infusion site pain [Unknown]
  - Cardiac disorder [Unknown]
  - Infusion site erythema [Unknown]
  - Hypertrophic cardiomyopathy [Unknown]

NARRATIVE: CASE EVENT DATE: 20190823
